FAERS Safety Report 14182228 (Version 1)
Quarter: 2017Q4

REPORT INFORMATION
  Report Type: Spontaneous
  Country: FR (occurrence: FR)
  Receive Date: 20171113
  Receipt Date: 20171113
  Transmission Date: 20180321
  Serious: Yes (Other)
  Sender: FDA-Public Use
  Company Number: FR-MERCK KGAA-2033879

PATIENT
  Age: 50 Year
  Sex: Female

DRUGS (2)
  1. NOVOTHYROX [Suspect]
     Active Substance: LEVOTHYROXINE SODIUM
     Indication: HYPOTHYROIDISM
     Route: 048
  2. LEVOTHYROX NF [Suspect]
     Active Substance: LEVOTHYROXINE SODIUM
     Route: 048

REACTIONS (6)
  - Headache [Unknown]
  - Decreased appetite [Unknown]
  - Fatigue [Unknown]
  - Insomnia [Unknown]
  - Arthralgia [Unknown]
  - Depression [Unknown]

NARRATIVE: CASE EVENT DATE: 201707
